FAERS Safety Report 11581589 (Version 1)
Quarter: 2015Q4

REPORT INFORMATION
  Report Type: Spontaneous
  Country: US (occurrence: US)
  Receive Date: 20151001
  Receipt Date: 20151001
  Transmission Date: 20160304
  Serious: No
  Sender: FDA-Public Use
  Company Number: US-ROCHE-660895

PATIENT
  Age: 41 Year
  Sex: Female

DRUGS (3)
  1. PEGASYS [Suspect]
     Active Substance: PEGINTERFERON ALFA-2A
     Indication: HEPATITIS C
     Dosage: FORM: PRE FILLED SYRINGE
     Route: 065
  2. RIBAVIRIN. [Suspect]
     Active Substance: RIBAVIRIN
     Indication: HEPATITIS C
     Dosage: DIVIDED DOSES
     Route: 065
  3. RISPERIDONE. [Suspect]
     Active Substance: RISPERIDONE
     Indication: TENSION
     Route: 065
     Dates: start: 20091201, end: 20091205

REACTIONS (14)
  - Skin ulcer [Not Recovered/Not Resolved]
  - Furuncle [Not Recovered/Not Resolved]
  - Stress urinary incontinence [Not Recovered/Not Resolved]
  - Tension [Unknown]
  - Rash papular [Not Recovered/Not Resolved]
  - Feeling abnormal [Unknown]
  - Fatigue [Unknown]
  - Menorrhagia [Unknown]
  - Menstrual disorder [Unknown]
  - Alopecia [Not Recovered/Not Resolved]
  - Rash [Not Recovered/Not Resolved]
  - Drug withdrawal syndrome [Unknown]
  - Hypoaesthesia [Unknown]
  - White blood cell count decreased [Not Recovered/Not Resolved]

NARRATIVE: CASE EVENT DATE: 20090929
